FAERS Safety Report 7595225-0 (Version None)
Quarter: 2011Q3

REPORT INFORMATION
  Report Type: 
  Country: None (occurrence: None)
  Receive Date: 20110707
  Receipt Date: 20110627
  Transmission Date: 20111222
  Serious: Yes (Hospitalization, Disabling)
  Sender: FDA-Public Use
  Company Number: DK-NOVOPROD-316373

PATIENT
  Sex: Male
  Weight: 84 kg

DRUGS (3)
  1. LEVEMIR [Concomitant]
     Indication: TYPE 1 DIABETES MELLITUS
     Dosage: UNK
     Dates: start: 20090902
  2. ACTRAPID [Suspect]
     Indication: TYPE 1 DIABETES MELLITUS
     Dosage: 30+ (25-30)+ (26-28)
     Dates: start: 20041001, end: 20090902
  3. NOVORAPID [Concomitant]
     Dosage: UNK

REACTIONS (6)
  - DISTURBANCE IN ATTENTION [None]
  - LEARNING DISORDER [None]
  - HYPOGLYCAEMIA [None]
  - MEMORY IMPAIRMENT [None]
  - CARDIAC ARREST [None]
  - MENTAL IMPAIRMENT [None]
